FAERS Safety Report 21383230 (Version 1)
Quarter: 2022Q3

REPORT INFORMATION
  Report Type: Spontaneous
  Country: MX (occurrence: MX)
  Receive Date: 20220927
  Receipt Date: 20220927
  Transmission Date: 20221027
  Serious: Yes (Other)
  Sender: FDA-Public Use
  Company Number: MX-009507513-2209MEX008134

PATIENT
  Age: 54 Year
  Sex: Female

DRUGS (2)
  1. PEMBROLIZUMAB [Suspect]
     Active Substance: PEMBROLIZUMAB
     Indication: Triple negative breast cancer
     Dosage: 14 CYCLES, SINCE JULY 2021 TO MAY 2022
     Dates: start: 202107, end: 202205
  2. PACLITAXEL [Suspect]
     Active Substance: PACLITAXEL
     Indication: Triple negative breast cancer
     Dates: start: 202107, end: 202205

REACTIONS (3)
  - Malignant neoplasm progression [Unknown]
  - Poisoning [Unknown]
  - Pruritus [Unknown]

NARRATIVE: CASE EVENT DATE: 20220501
